FAERS Safety Report 17147077 (Version 1)
Quarter: 2019Q4

REPORT INFORMATION
  Report Type: Spontaneous
  Country: RS (occurrence: RS)
  Receive Date: 20191212
  Receipt Date: 20191212
  Transmission Date: 20200122
  Serious: Yes (Other)
  Sender: FDA-Public Use
  Company Number: NVSC2019RS065167

PATIENT

DRUGS (1)
  1. VOTRIENT [Suspect]
     Active Substance: PAZOPANIB HYDROCHLORIDE
     Indication: RENAL CANCER METASTATIC
     Route: 065

REACTIONS (3)
  - Transaminases increased [Unknown]
  - General physical health deterioration [Unknown]
  - Fatigue [Unknown]
